FAERS Safety Report 25426709 (Version 1)
Quarter: 2025Q2

REPORT INFORMATION
  Report Type: Spontaneous
  Country: US (occurrence: US)
  Receive Date: 20250612
  Receipt Date: 20250612
  Transmission Date: 20250717
  Serious: No
  Sender: ELI LILLY AND COMPANY
  Company Number: US-ELI_LILLY_AND_COMPANY-US202506005277

PATIENT
  Age: 52 Year
  Sex: Male

DRUGS (1)
  1. ZEPBOUND [Suspect]
     Active Substance: TIRZEPATIDE
     Indication: Product used for unknown indication
     Dosage: 2.5 MG, WEEKLY (1/W)
     Route: 058
     Dates: start: 202504

REACTIONS (9)
  - Intentional product misuse [Unknown]
  - Presyncope [Unknown]
  - Sleep disorder due to general medical condition, insomnia type [Unknown]
  - Muscular weakness [Unknown]
  - Mobility decreased [Unknown]
  - Paraesthesia [Unknown]
  - Dysphagia [Unknown]
  - Asthenia [Unknown]
  - Fatigue [Unknown]

NARRATIVE: CASE EVENT DATE: 20250601
